FAERS Safety Report 8509512-2 (Version None)
Quarter: 2012Q3

REPORT INFORMATION
  Report Type: 
  Country: None (occurrence: None)
  Receive Date: 20120713
  Receipt Date: 20120704
  Transmission Date: 20120928
  Serious: Yes (Hospitalization, Other)
  Sender: FDA-Public Use
  Company Number: GB-VERTEX PHARMACEUTICALS INC.-000000000000000963

PATIENT
  Sex: Male
  Weight: 114 kg

DRUGS (4)
  1. TELAPREVIR [Suspect]
     Indication: HEPATITIS C
     Dosage: DOSAGE FORM: TABLET
     Route: 048
     Dates: start: 20120615
  2. RIBAVIRIN [Concomitant]
     Indication: HEPATITIS C
     Dates: start: 20120615
  3. PEG-INTRON [Concomitant]
     Indication: HEPATITIS C
     Dates: start: 20120615
  4. ATENOLOL [Concomitant]

REACTIONS (1)
  - RETINAL DETACHMENT [None]
